FAERS Safety Report 8144026-3 (Version None)
Quarter: 2012Q1

REPORT INFORMATION
  Report Type: 
  Country: None (occurrence: None)
  Receive Date: 20120217
  Receipt Date: 20120217
  Transmission Date: 20120608
  Serious: Yes (Death)
  Sender: FDA-Public Use
  Company Number: None

PATIENT
  Sex: Female
  Weight: 81.646 kg

DRUGS (1)
  1. CITALOPRAM -GENERIC FOR CELEXA- [Suspect]
     Indication: ANXIETY
     Dosage: 20.0 MG
     Route: 048
     Dates: start: 20110329, end: 20120412

REACTIONS (8)
  - PRODUCT LABEL ISSUE [None]
  - PERSONALITY CHANGE [None]
  - FEAR [None]
  - GUN SHOT WOUND [None]
  - HEAD INJURY [None]
  - COMPLETED SUICIDE [None]
  - FEELING ABNORMAL [None]
  - NIGHTMARE [None]
